FAERS Safety Report 18902253 (Version 1)
Quarter: 2021Q1

REPORT INFORMATION
  Report Type: Spontaneous
  Country: US (occurrence: US)
  Receive Date: 20210217
  Receipt Date: 20210217
  Transmission Date: 20210420
  Serious: Yes (Life-Threatening, Hospitalization, Other)
  Sender: FDA-Public Use
  Company Number: US-GRANULES-US-2021GRALIT00137

PATIENT
  Age: 62 Year
  Sex: Male
  Weight: 73.8 kg

DRUGS (3)
  1. SODIUM BICARBONATE. [Interacting]
     Active Substance: SODIUM BICARBONATE
     Route: 040
  2. METFORMIN HCL [Suspect]
     Active Substance: METFORMIN HYDROCHLORIDE
     Indication: TYPE 2 DIABETES MELLITUS
     Route: 065
  3. SODIUM BICARBONATE. [Interacting]
     Active Substance: SODIUM BICARBONATE
     Dosage: 6 AMPULES
     Route: 065

REACTIONS (6)
  - Lactic acidosis [Recovering/Resolving]
  - Abdominal tenderness [Recovering/Resolving]
  - Tachycardia [Recovering/Resolving]
  - Acute kidney injury [Recovering/Resolving]
  - Tachypnoea [Recovering/Resolving]
  - Toxicity to various agents [Recovering/Resolving]
